FAERS Safety Report 15620777 (Version 2)
Quarter: 2019Q2

REPORT INFORMATION
  Report Type: Report from Study
  Country: US (occurrence: US)
  Receive Date: 20181115
  Receipt Date: 20190623
  Transmission Date: 20190711
  Serious: Yes (Death, Life-Threatening, Hospitalization)
  Sender: FDA-Public Use
  Company Number: US-JNJFOC-20160914348

PATIENT
  Age: 75 Year
  Sex: Female

DRUGS (19)
  1. ASPIRIN. [Concomitant]
     Active Substance: ASPIRIN
  2. LIPITOR [Concomitant]
     Active Substance: ATORVASTATIN CALCIUM
  3. IPRATROPIUM BROMIDE. [Concomitant]
     Active Substance: IPRATROPIUM BROMIDE
  4. PROTONIX [Concomitant]
     Active Substance: PANTOPRAZOLE SODIUM
  5. ADVAIR HFA [Concomitant]
     Active Substance: FLUTICASONE PROPIONATE\SALMETEROL XINAFOATE
  6. GLIPIZIDE. [Concomitant]
     Active Substance: GLIPIZIDE
  7. SINEMET [Concomitant]
     Active Substance: CARBIDOPA\LEVODOPA
  8. ALBUTEROL SULFATE. [Concomitant]
     Active Substance: ALBUTEROL SULFATE
  9. HYDROCORTISONE-NEOMYCIN-POLYMYXIN B [Concomitant]
     Active Substance: HYDROCORTISONE\NEOMYCIN\POLYMYXIN B
  10. PANTOPRAZOLE [Concomitant]
     Active Substance: PANTOPRAZOLE
  11. PREDNISONE. [Concomitant]
     Active Substance: PREDNISONE
  12. AMOXICILLIN AND CLAVULA. POTASSIUM /02043401/ [Concomitant]
     Active Substance: AMOXICILLIN\CLAVULANATE POTASSIUM
  13. LEXAPRO [Concomitant]
     Active Substance: ESCITALOPRAM OXALATE
  14. PROAIR HFA [Concomitant]
     Active Substance: ALBUTEROL SULFATE
  15. VESICARE [Concomitant]
     Active Substance: SOLIFENACIN SUCCINATE
  16. MEDROL [Concomitant]
     Active Substance: METHYLPREDNISOLONE
  17. ROPINIROLE. [Concomitant]
     Active Substance: ROPINIROLE
  18. IMBRUVICA [Suspect]
     Active Substance: IBRUTINIB
     Indication: CHRONIC LYMPHOCYTIC LEUKAEMIA
     Route: 048
     Dates: start: 20160805, end: 20160904
  19. SPIRIVA [Concomitant]
     Active Substance: TIOTROPIUM BROMIDE MONOHYDRATE

REACTIONS (3)
  - Dyspnoea [Fatal]
  - Aspergillus infection [Fatal]
  - Staphylococcal sepsis [Recovered/Resolved]

NARRATIVE: CASE EVENT DATE: 20160903
